FAERS Safety Report 20961082 (Version 1)
Quarter: 2022Q2

REPORT INFORMATION
  Report Type: Spontaneous
  Country: PH (occurrence: None)
  Receive Date: 20220615
  Receipt Date: 20220615
  Transmission Date: 20220721
  Serious: Yes (Other)
  Sender: FDA-Public Use
  Company Number: PH-ROCHE-3112761

PATIENT
  Age: 55 Year
  Sex: Female
  Weight: 53 kg

DRUGS (2)
  1. HERCEPTIN [Suspect]
     Active Substance: TRASTUZUMAB
     Indication: Product used for unknown indication
     Dosage: 150MG ;ONGOING: YES
     Route: 041
  2. PERJETA [Concomitant]
     Active Substance: PERTUZUMAB
     Indication: Breast cancer metastatic
     Dosage: 420MG ;ONGOING: YES
     Route: 042

REACTIONS (1)
  - Metastasis [Unknown]
